FAERS Safety Report 13825369 (Version 1)
Quarter: 2017Q3

REPORT INFORMATION
  Report Type: Spontaneous
  Country: US (occurrence: US)
  Receive Date: 20170802
  Receipt Date: 20170802
  Transmission Date: 20171127
  Serious: Yes (Hospitalization)
  Sender: FDA-Public Use
  Company Number: US-B.I. PHARMACEUTICALS,INC./RIDGEFIELD-2017-BI-042162

PATIENT
  Age: 73 Year
  Sex: Female

DRUGS (26)
  1. SODIUM CHLORIDE. [Concomitant]
     Active Substance: SODIUM CHLORIDE
     Indication: PRODUCT USED FOR UNKNOWN INDICATION
     Route: 042
  2. MORPHINE SULFATE. [Concomitant]
     Active Substance: MORPHINE SULFATE
     Indication: PRODUCT USED FOR UNKNOWN INDICATION
     Dosage: 1 MG EVERY 4 HOURS AS REQUIRED (Q4H PRN)
     Route: 042
  3. MAGNESIUM SULFATE. [Concomitant]
     Active Substance: MAGNESIUM SULFATE
     Indication: PRODUCT USED FOR UNKNOWN INDICATION
     Dosage: 1 MG EVERY 4 HOURS AS REQUIRED (Q4H PRN)
     Route: 042
  4. PRADAXA [Suspect]
     Active Substance: DABIGATRAN ETEXILATE MESYLATE
     Indication: ATRIAL FIBRILLATION
     Route: 065
  5. XARELTO [Suspect]
     Active Substance: RIVAROXABAN
     Indication: ATRIAL FIBRILLATION
     Route: 048
  6. NORCO [Concomitant]
     Active Substance: ACETAMINOPHEN\HYDROCODONE BITARTRATE
     Indication: PRODUCT USED FOR UNKNOWN INDICATION
     Dosage: FORM STRENGTH: 7.5/325 MG
     Route: 048
  7. TAPAZOLE [Concomitant]
     Active Substance: METHIMAZOLE
     Indication: HYPERTHYROIDISM
     Route: 048
  8. LORAZEPAM. [Concomitant]
     Active Substance: LORAZEPAM
     Indication: PRODUCT USED FOR UNKNOWN INDICATION
     Route: 042
  9. CLINDAMYCIN PHOSPHATE/DEXTROSE [Concomitant]
     Indication: PRODUCT USED FOR UNKNOWN INDICATION
     Route: 042
  10. POTASSIUM CHLORIDE. [Concomitant]
     Active Substance: POTASSIUM CHLORIDE
     Indication: PRODUCT USED FOR UNKNOWN INDICATION
     Route: 042
  11. POTASSIUM CHLORIDE. [Concomitant]
     Active Substance: POTASSIUM CHLORIDE
     Dosage: 100 ML AS DIRECTED (ASDIR)
     Route: 042
  12. DEXTROSE/WATER [Concomitant]
     Indication: PRODUCT USED FOR UNKNOWN INDICATION
     Route: 065
  13. POTASSIUM CHLORIDE. [Concomitant]
     Active Substance: POTASSIUM CHLORIDE
     Dosage: 20 MILLIEQUIVALENTS (MEQ) AS DIRECTED (ASDIR)
     Route: 048
  14. XANAX [Concomitant]
     Active Substance: ALPRAZOLAM
     Indication: ANXIETY
     Dosage: 0.25 MG AT BEDTIME AS NEEDED
     Route: 048
  15. POTASSIUM CHLORIDE. [Concomitant]
     Active Substance: POTASSIUM CHLORIDE
     Dosage: 20 MILLIEQUIVALENTS (MEQ) AS DIRECTED (ASDIR)
     Route: 048
  16. NITROGLYCERIN. [Concomitant]
     Active Substance: NITROGLYCERIN
     Indication: PRODUCT USED FOR UNKNOWN INDICATION
     Dosage: 0.4 MG EVERY 5 MINUTES AS REQUIRED (Q5M PRN)
     Route: 060
  17. LORAZEPAM. [Concomitant]
     Active Substance: LORAZEPAM
     Dosage: 0.5 MG EVERY 6 HOURS AS REQUIRED (Q6H PRN)
     Route: 042
  18. POTASSIUM CHLORIDE. [Concomitant]
     Active Substance: POTASSIUM CHLORIDE
     Dosage: 40 MILLIEQUIVALENTS (MEQ) AS DIRECTED (ASDIR)
     Route: 048
  19. POTASSIUM CHLORIDE. [Concomitant]
     Active Substance: POTASSIUM CHLORIDE
     Dosage: 1 DOSE ASDIR MISCELLANEOUS (MISC.)
     Route: 065
  20. POTASSIUM CHLORIDE. [Concomitant]
     Active Substance: POTASSIUM CHLORIDE
     Indication: CHRONIC KIDNEY DISEASE
     Dosage: 20 MILLIEQUIVALENTS (MEQ) AS DIRECTED (ASDIR)
     Route: 048
  21. POTASSIUM CHLORIDE. [Concomitant]
     Active Substance: POTASSIUM CHLORIDE
     Dosage: 40 MILLIEQUIVALENTS (MEQ) AS DIRECTED (ASDIR)
     Route: 048
  22. MAGNESIUM SULFATE. [Concomitant]
     Active Substance: MAGNESIUM SULFATE
     Indication: CHRONIC KIDNEY DISEASE
     Dosage: 50 ML ASDIR
     Route: 042
  23. ONDANSETRON HCL [Concomitant]
     Active Substance: ONDANSETRON HYDROCHLORIDE
     Indication: PRODUCT USED FOR UNKNOWN INDICATION
     Dosage: 4 MG EVERY 6 HOURS AS REQUIRED (Q6H PRN)
     Route: 042
  24. MAGNESIUM SULFATE/ DEXTROSE [Concomitant]
     Indication: CHRONIC KIDNEY DISEASE
     Dosage: 100 ML ASDIR
     Route: 042
  25. CARDIZEM CD [Concomitant]
     Active Substance: DILTIAZEM HYDROCHLORIDE
     Indication: ATRIAL FIBRILLATION
     Route: 048
  26. POTASSIUM CHLORIDE. [Concomitant]
     Active Substance: POTASSIUM CHLORIDE
     Dosage: 40 MILLIEQUIVALENTS (MEQ) AS DIRECTED (ASDIR)
     Route: 048

REACTIONS (6)
  - Haematoma [Recovering/Resolving]
  - Haemorrhagic anaemia [Unknown]
  - Cellulitis [Recovering/Resolving]
  - Epistaxis [Unknown]
  - Fall [Unknown]
  - Coagulopathy [Unknown]
